FAERS Safety Report 5962564-6 (Version None)
Quarter: 2008Q4

REPORT INFORMATION
  Report Type: 
  Country: None (occurrence: None)
  Receive Date: 20081121
  Receipt Date: 20081117
  Transmission Date: 20090506
  Serious: Yes (Death, Other)
  Sender: FDA-Public Use
  Company Number: PHHY2008TW25994

PATIENT
  Sex: Female
  Weight: 52 kg

DRUGS (2)
  1. DIOVAN HCT [Suspect]
     Indication: HYPERTENSION
     Dosage: 1 DF, UNK
     Route: 048
     Dates: start: 20080728
  2. INSULIN [Concomitant]
     Indication: DIABETES MELLITUS
     Dosage: 28 UNIT
     Route: 058

REACTIONS (2)
  - PNEUMONIA [None]
  - RESPIRATORY FAILURE [None]
